FAERS Safety Report 16235766 (Version 2)
Quarter: 2019Q2

REPORT INFORMATION
  Report Type: Spontaneous
  Country: IN (occurrence: IN)
  Receive Date: 20190424
  Receipt Date: 20190502
  Transmission Date: 20190711
  Serious: Yes (Other)
  Sender: FDA-Public Use
  Company Number: PHHY2019IN089614

PATIENT
  Age: 22 Year
  Sex: Female

DRUGS (2)
  1. ACETYLSALICYLIC ACID [Suspect]
     Active Substance: ASPIRIN
     Indication: WALDENSTROM^S MACROGLOBULINAEMIA
     Dosage: 75 MG, QD
     Route: 065
  2. HYDROXYCHLOROQUINE [Suspect]
     Active Substance: HYDROXYCHLOROQUINE
     Indication: WALDENSTROM^S MACROGLOBULINAEMIA
     Dosage: 200 MG, BID
     Route: 065

REACTIONS (4)
  - Vaginal discharge [Unknown]
  - Product use in unapproved indication [Unknown]
  - Foetal distress syndrome [Unknown]
  - Maternal exposure during pregnancy [Unknown]
